FAERS Safety Report 18872860 (Version 1)
Quarter: 2021Q1

REPORT INFORMATION
  Report Type: Spontaneous
  Country: US (occurrence: US)
  Receive Date: 20210210
  Receipt Date: 20210210
  Transmission Date: 20210420
  Serious: Yes (Other)
  Sender: FDA-Public Use
  Company Number: None

PATIENT
  Age: 45 Year
  Sex: Female
  Weight: 115 kg

DRUGS (1)
  1. GADAVIST [Suspect]
     Active Substance: GADOBUTROL
     Dosage: ?          OTHER FREQUENCY:ONCE;?
     Route: 042

REACTIONS (17)
  - Pruritus [None]
  - Headache [None]
  - Paraesthesia [None]
  - Asthenia [None]
  - Gadolinium deposition disease [None]
  - Hypoacusis [None]
  - Tachycardia [None]
  - Rash [None]
  - Visual impairment [None]
  - Nausea [None]
  - Skin burning sensation [None]
  - Dysphagia [None]
  - Sensory disturbance [None]
  - Tinnitus [None]
  - Bone pain [None]
  - Muscle contractions involuntary [None]
  - Tremor [None]

NARRATIVE: CASE EVENT DATE: 20191015
